FAERS Safety Report 24700626 (Version 1)
Quarter: 2024Q4

REPORT INFORMATION
  Report Type: Spontaneous
  Country: CN (occurrence: CN)
  Receive Date: 20241205
  Receipt Date: 20241205
  Transmission Date: 20250115
  Serious: Yes (Other)
  Sender: ACCORD
  Company Number: None

PATIENT
  Age: 66 Year
  Sex: Male
  Weight: 51 kg

DRUGS (4)
  1. TRASTUZUMAB [Suspect]
     Active Substance: TRASTUZUMAB
     Indication: Gastric cancer
     Dosage: 300 MILLIGRAM, IMMEDIATELY (ST), STRENGTH 150 MILLIGRAM
     Route: 042
     Dates: start: 20241112, end: 20241112
  2. DOCETAXEL [Suspect]
     Active Substance: DOCETAXEL
     Indication: Gastric cancer
     Dosage: 120 MILLIGRAM, QD
     Route: 042
     Dates: start: 20241113, end: 20241113
  3. CISPLATIN [Suspect]
     Active Substance: CISPLATIN
     Indication: Gastric cancer
     Dosage: 30 MILLIGRAM, QD, IV DRIP, STERILE POWDER FOR INJECTION
     Route: 042
     Dates: start: 20241113, end: 20241113
  4. CISPLATIN [Suspect]
     Active Substance: CISPLATIN
     Indication: Gastric cancer
     Dosage: 40 MILLIGRAM, QD, STERILE POWDER FOR INJECTION, IV DRIP
     Route: 042
     Dates: start: 20241114, end: 20241115

REACTIONS (2)
  - Myelosuppression [Unknown]
  - Nausea [Unknown]

NARRATIVE: CASE EVENT DATE: 20241118
